FAERS Safety Report 25688732 (Version 3)
Quarter: 2025Q4

REPORT INFORMATION
  Report Type: Spontaneous
  Country: US (occurrence: US)
  Receive Date: 20250818
  Receipt Date: 20251001
  Transmission Date: 20260118
  Serious: No
  Sender: CALLIDITAS THERAPEUTICS AB
  Company Number: US-Calliditas-2025CAL02400

PATIENT
  Age: 58 Year
  Sex: Female

DRUGS (4)
  1. TARPEYO [Suspect]
     Active Substance: BUDESONIDE
     Indication: IgA nephropathy
     Route: 048
     Dates: start: 20250801
  2. LOSARTAN [Concomitant]
     Active Substance: LOSARTAN
  3. MONTELUKAST [Concomitant]
     Active Substance: MONTELUKAST
  4. AZELASTINE [Concomitant]
     Active Substance: AZELASTINE

REACTIONS (8)
  - Pruritus [Unknown]
  - Contusion [Unknown]
  - Headache [Unknown]
  - Unevaluable event [Recovering/Resolving]
  - Feeling abnormal [Unknown]
  - Initial insomnia [Unknown]
  - Nasopharyngitis [Recovering/Resolving]
  - Somnolence [Unknown]

NARRATIVE: CASE EVENT DATE: 20250801
